FAERS Safety Report 5986270-7 (Version None)
Quarter: 2008Q4

REPORT INFORMATION
  Report Type: 
  Country: None (occurrence: None)
  Receive Date: 20081209
  Receipt Date: 20081204
  Transmission Date: 20090506
  Serious: Yes (Other)
  Sender: FDA-Public Use
  Company Number: DE-BRISTOL-MYERS SQUIBB COMPANY-14340640

PATIENT
  Sex: Male

DRUGS (3)
  1. REYATAZ [Suspect]
  2. SUSTIVA [Suspect]
  3. TRUVADA [Suspect]

REACTIONS (1)
  - DRUG INEFFECTIVE [None]
